FAERS Safety Report 4548264-8 (Version None)
Quarter: 2005Q1

REPORT INFORMATION
  Report Type: 
  Country: None (occurrence: None)
  Receive Date: 20050106
  Receipt Date: 20050106
  Transmission Date: 20050727
  Serious: Yes (Hospitalization)
  Sender: FDA-Public Use
  Company Number: None

PATIENT
  Age: 24 Year
  Sex: Female
  Weight: 74.8435 kg

DRUGS (1)
  1. CRYSELLE [Suspect]
     Indication: CONTRACEPTION
     Dosage: 1 TABLET    DAILY   ORAL
     Route: 048
     Dates: start: 20041209, end: 20041223

REACTIONS (4)
  - ABDOMINAL PAIN UPPER [None]
  - DYSFUNCTIONAL UTERINE BLEEDING [None]
  - HEADACHE [None]
  - MENORRHAGIA [None]
